FAERS Safety Report 4539349-0 (Version None)
Quarter: 2004Q4

REPORT INFORMATION
  Report Type: 
  Country: None (occurrence: None)
  Receive Date: 20041222
  Receipt Date: 20041207
  Transmission Date: 20050328
  Serious: Yes (Hospitalization)
  Sender: FDA-Public Use
  Company Number: USA041183332

PATIENT
  Age: 71 Year
  Sex: Male
  Weight: 86 kg

DRUGS (11)
  1. CYMBALTA [Suspect]
     Dosage: 60 MG DAY
     Dates: start: 20041101, end: 20041103
  2. KEFLEX [Concomitant]
  3. ASPIRIN [Concomitant]
  4. NEURONTIN (GABAPENTIN PFIZER) [Concomitant]
  5. REGULAR INSULIN [Concomitant]
  6. ZOCOR (SIMVASTATIN RATIOPHARM) [Concomitant]
  7. TOPROL-XL [Concomitant]
  8. GEMFIBROZIL [Concomitant]
  9. LISINOPRIL [Concomitant]
  10. HYDROCHLOROTHIAZIDE [Concomitant]
  11. IBUPROFEN [Concomitant]

REACTIONS (9)
  - BLOOD CALCIUM INCREASED [None]
  - BLOOD SODIUM DECREASED [None]
  - GLYCOSYLATED HAEMOGLOBIN INCREASED [None]
  - HAEMATEMESIS [None]
  - HAEMATOCRIT DECREASED [None]
  - NAUSEA [None]
  - RETCHING [None]
  - VOMITING [None]
  - WHITE BLOOD CELL COUNT INCREASED [None]
